FAERS Safety Report 8822419 (Version 1)
Quarter: 2012Q4

REPORT INFORMATION
  Report Type: 
  Country: BR (occurrence: BR)
  Receive Date: 20121003
  Receipt Date: 20121003
  Transmission Date: 20130627
  Serious: Yes (Death)
  Sender: FDA-Public Use
  Company Number: BR-SANOFI-AVENTIS-2012SA070420

PATIENT
  Age: 64 Year
  Sex: Female

DRUGS (2)
  1. LANTUS [Suspect]
     Indication: TYPE I DIABETES MELLITUS
     Route: 058
     Dates: start: 2006, end: 2011
  2. UNSPECIFIED INGREDIENT [Suspect]
     Indication: DEVICE THERAPY
     Dates: start: 2006, end: 2011

REACTIONS (2)
  - Pancreatic carcinoma [Fatal]
  - Renal failure [Fatal]
